FAERS Safety Report 9889342 (Version 1)
Quarter: 2014Q1

REPORT INFORMATION
  Report Type: Spontaneous
  Country: US (occurrence: US)
  Receive Date: 20140211
  Receipt Date: 20140211
  Transmission Date: 20141002
  Serious: Yes (Hospitalization)
  Sender: FDA-Public Use
  Company Number: US-BRISTOL-MYERS SQUIBB COMPANY-20162640

PATIENT
  Age: 23 Year
  Sex: Female

DRUGS (4)
  1. ABILIFY [Suspect]
     Route: 048
  2. ABILIFY MAINTENA INJECTION [Suspect]
     Indication: SCHIZOAFFECTIVE DISORDER
     Route: 065
  3. CLOZARIL [Concomitant]
  4. PROPRANOLOL [Concomitant]

REACTIONS (4)
  - Investigation [Unknown]
  - Impulsive behaviour [Recovering/Resolving]
  - Restlessness [Recovering/Resolving]
  - Off label use [Unknown]
